FAERS Safety Report 6963428-1 (Version None)
Quarter: 2010Q3

REPORT INFORMATION
  Report Type: 
  Country: None (occurrence: None)
  Receive Date: 20100902
  Receipt Date: 20100830
  Transmission Date: 20110219
  Serious: Yes (Other)
  Sender: FDA-Public Use
  Company Number: A0879074A

PATIENT
  Sex: Male
  Weight: 65 kg

DRUGS (5)
  1. DIGOXIN [Suspect]
     Indication: CARDIAC FAILURE
     Dosage: .5TAB PER DAY
     Route: 048
     Dates: start: 20070101, end: 20100823
  2. CONCOR [Concomitant]
     Dosage: 1TAB PER DAY
     Route: 048
     Dates: start: 20080101
  3. PURAN T4 [Concomitant]
     Dosage: 1TAB PER DAY
     Route: 048
  4. ALDACTONE [Concomitant]
     Dosage: 1TAB PER DAY
     Route: 048
     Dates: start: 20090101
  5. ALFUZOSIN HCL [Concomitant]
     Dosage: 1TAB PER DAY
     Route: 048
     Dates: start: 20080101

REACTIONS (4)
  - CONVULSION [None]
  - MALAISE [None]
  - THERAPEUTIC AGENT TOXICITY [None]
  - TREMOR [None]
